FAERS Safety Report 5797275-3 (Version None)
Quarter: 2008Q3

REPORT INFORMATION
  Report Type: 
  Country: None (occurrence: None)
  Receive Date: 20080701
  Receipt Date: 20080619
  Transmission Date: 20090109
  Serious: Yes (Other)
  Sender: FDA-Public Use
  Company Number: US-PFIZER INC-2008051934

PATIENT
  Sex: Male

DRUGS (38)
  1. VIAGRA [Suspect]
     Indication: ERECTILE DYSFUNCTION
     Dosage: DAILY DOSE:50MG
     Route: 048
  2. HYDROCODONE [Suspect]
     Indication: KNEE OPERATION
     Dosage: TEXT:7.5/750 Q4H
  3. ALLOPURINOL [Concomitant]
  4. ATACAND [Concomitant]
  5. BENAZEPRIL HYDROCHLORIDE [Concomitant]
  6. BENAZEPRIL HYDROCHLORIDE [Concomitant]
  7. FUROSEMIDE [Concomitant]
  8. FUROSEMIDE [Concomitant]
  9. GLYBURIDE [Concomitant]
  10. GLYBURIDE [Concomitant]
  11. HYDROCHLOROTHIAZIDE [Concomitant]
  12. HYDROCHLOROTHIAZIDE [Concomitant]
  13. MELOXICAM [Concomitant]
  14. MELOXICAM [Concomitant]
  15. PRAMIPEXOLE DIHYDROCHLORIDE [Concomitant]
  16. PRAMIPEXOLE DIHYDROCHLORIDE [Concomitant]
  17. CARBIDOPA AND LEVODOPA [Concomitant]
  18. CARBIDOPA AND LEVODOPA [Concomitant]
  19. NASONEX [Concomitant]
  20. NASONEX [Concomitant]
  21. NEXIUM [Concomitant]
  22. NEXIUM [Concomitant]
  23. POTASSIUM CHLORIDE [Concomitant]
  24. POTASSIUM CHLORIDE [Concomitant]
  25. ALL OTHER THERAPEUTIC PRODUCTS [Concomitant]
  26. ALL OTHER THERAPEUTIC PRODUCTS [Concomitant]
  27. TOPROL-XL [Concomitant]
  28. TOPROL-XL [Concomitant]
  29. VITAMIN CAP [Concomitant]
  30. VITAMIN CAP [Concomitant]
  31. VITAMIN E [Concomitant]
  32. VITAMIN E [Concomitant]
  33. VITAMIN B [Concomitant]
  34. VITAMIN B [Concomitant]
  35. CALCIUM [Concomitant]
  36. CALCIUM [Concomitant]
  37. VYTORIN [Concomitant]
  38. UROXATRAL [Concomitant]

REACTIONS (9)
  - ANXIETY [None]
  - CEREBROVASCULAR ACCIDENT [None]
  - DRUG INEFFECTIVE [None]
  - FLUSHING [None]
  - KNEE ARTHROPLASTY [None]
  - MUSCULAR WEAKNESS [None]
  - OVERDOSE [None]
  - SUICIDAL IDEATION [None]
  - TRANSURETHRAL PROSTATECTOMY [None]
